FAERS Safety Report 13017456 (Version 1)
Quarter: 2016Q4

REPORT INFORMATION
  Report Type: Spontaneous
  Country: US (occurrence: US)
  Receive Date: 20161209
  Receipt Date: 20161209
  Transmission Date: 20170207
  Serious: Yes (Hospitalization)
  Sender: FDA-Public Use
  Company Number: None

PATIENT
  Age: 3 Year
  Sex: Male
  Weight: 20.4 kg

DRUGS (6)
  1. DEXAMETHASONE. [Suspect]
     Active Substance: DEXAMETHASONE
     Dates: end: 20161202
  2. CYTARABINE. [Suspect]
     Active Substance: CYTARABINE
     Dates: end: 20161110
  3. METHOTREXATE. [Suspect]
     Active Substance: METHOTREXATE
     Dates: end: 20161117
  4. VINCRISTINE SULFATE. [Suspect]
     Active Substance: VINCRISTINE SULFATE
     Dates: end: 20161130
  5. DAUNORUBICIN [Suspect]
     Active Substance: DAUNORUBICIN
     Dates: end: 20161130
  6. ONCASPAR [Suspect]
     Active Substance: PEGASPARGASE
     Dates: end: 20161126

REACTIONS (3)
  - Abdominal pain upper [None]
  - Abdominal pain [None]
  - Duodenal perforation [None]

NARRATIVE: CASE EVENT DATE: 20151202
